FAERS Safety Report 7473930-4 (Version None)
Quarter: 2011Q2

REPORT INFORMATION
  Report Type: 
  Country: None (occurrence: None)
  Receive Date: 20110511
  Receipt Date: 20110426
  Transmission Date: 20111010
  Serious: No
  Sender: FDA-Public Use
  Company Number: US-ABBOTT-11P-163-0722139-00

PATIENT
  Sex: Female
  Weight: 89.438 kg

DRUGS (1)
  1. NORVIR [Suspect]
     Indication: HIV INFECTION
     Dates: start: 20101201, end: 20101201

REACTIONS (4)
  - HYPERSENSITIVITY [None]
  - RASH [None]
  - PRURITUS [None]
  - OEDEMA PERIPHERAL [None]
